FAERS Safety Report 9780666 (Version 2)
Quarter: 2013Q4

REPORT INFORMATION
  Report Type: Report from Study
  Country: BR (occurrence: BR)
  Receive Date: 20131224
  Receipt Date: 20131224
  Transmission Date: 20140711
  Serious: Yes (Other)
  Sender: FDA-Public Use
  Company Number: BR-JNJFOC-20131214154

PATIENT
  Sex: Female

DRUGS (3)
  1. TRAMAL [Suspect]
     Indication: PRODUCT USED FOR UNKNOWN INDICATION
     Route: 048
     Dates: start: 20131109, end: 2013
  2. LYRICA [Suspect]
     Indication: PAIN
     Route: 048
     Dates: start: 20131109, end: 2013
  3. LYRICA [Suspect]
     Indication: PAIN
     Route: 048
     Dates: start: 2013

REACTIONS (5)
  - Mental impairment [Unknown]
  - Mental impairment [Unknown]
  - Hypersomnia [Unknown]
  - Disorientation [Unknown]
  - Muscular weakness [Unknown]
